FAERS Safety Report 5981678-8 (Version None)
Quarter: 2008Q4

REPORT INFORMATION
  Report Type: 
  Country: None (occurrence: None)
  Receive Date: 20081205
  Receipt Date: 20081125
  Transmission Date: 20090506
  Serious: Yes (Hospitalization)
  Sender: FDA-Public Use
  Company Number: US-ABBOTT-08P-163-0489665-00

PATIENT
  Sex: Female

DRUGS (2)
  1. ERYTHROMYCIN BASE [Suspect]
     Indication: BRONCHITIS
     Dosage: UNKNOWN DOSAGE
     Dates: start: 19960101, end: 19960101
  2. ERYTHROMYCIN BASE [Suspect]
     Indication: PNEUMONIA

REACTIONS (2)
  - ABDOMINAL PAIN UPPER [None]
  - PNEUMONIA [None]
